FAERS Safety Report 4689479-8 (Version None)
Quarter: 2005Q2

REPORT INFORMATION
  Report Type: 
  Country: None (occurrence: None)
  Receive Date: 20050608
  Receipt Date: 20050217
  Transmission Date: 20051028
  Serious: No
  Sender: FDA-Public Use
  Company Number: 2005-BP-02763BP

PATIENT
  Age: 82 Year
  Sex: Female

DRUGS (12)
  1. SPIRIVA [Suspect]
     Indication: MULTIPLE ALLERGIES
     Dosage: 18 MCG (18 MCG, QD), IH
     Route: 055
     Dates: start: 20050101
  2. SPIRIVA [Suspect]
  3. AMARYL [Concomitant]
  4. GLUCOPHAGE [Concomitant]
  5. LIPITOR [Concomitant]
  6. ACETYLSALICYLIC ACID SRT [Concomitant]
  7. NITROGLYCERIN [Concomitant]
  8. LEVOXYL [Concomitant]
  9. LISINOPRIL [Concomitant]
  10. SINGULAIR [Concomitant]
  11. ALLEGRA [Concomitant]
  12. MUCINEX (GUAIFENESIN) [Concomitant]

REACTIONS (1)
  - COUGH [None]
